FAERS Safety Report 13906924 (Version 4)
Quarter: 2017Q3

REPORT INFORMATION
  Report Type: Spontaneous
  Country: US (occurrence: US)
  Receive Date: 20170825
  Receipt Date: 20170913
  Transmission Date: 20171127
  Serious: No
  Sender: FDA-Public Use
  Company Number: US-ELI_LILLY_AND_COMPANY-US201708008178

PATIENT
  Age: 8 Year
  Sex: Male
  Weight: 27 kg

DRUGS (10)
  1. TYVASO [Suspect]
     Active Substance: TREPROSTINIL
     Indication: PULMONARY ARTERIAL HYPERTENSION
     Dosage: 36 UG, QID (24-36 UG / 4-6 BREATHS, QID)
     Route: 055
     Dates: start: 20140911
  2. ASPRIN [Concomitant]
     Active Substance: ASPIRIN
  3. LASIX [Concomitant]
     Active Substance: FUROSEMIDE
  4. PYRIDOXINE [Concomitant]
     Active Substance: PYRIDOXINE
  5. ADCIRCA [Suspect]
     Active Substance: TADALAFIL
     Indication: PRODUCT USED FOR UNKNOWN INDICATION
     Dosage: UNK UNK, EACH MORNING
     Route: 065
  6. LETAIRIS [Suspect]
     Active Substance: AMBRISENTAN
     Indication: PRODUCT USED FOR UNKNOWN INDICATION
     Dosage: UNK, EACH MORNING
     Route: 065
  7. LETAIRIS [Suspect]
     Active Substance: AMBRISENTAN
     Dosage: UNK, EACH EVENING
     Route: 065
  8. KEPPRA [Concomitant]
     Active Substance: LEVETIRACETAM
  9. LETAIRIS [Suspect]
     Active Substance: AMBRISENTAN
     Dosage: 5 MG, DAILY
     Route: 048
  10. ADCIRCA [Suspect]
     Active Substance: TADALAFIL
     Dosage: UNK UNK, EACH EVENING
     Route: 065

REACTIONS (3)
  - Abnormal behaviour [Not Recovered/Not Resolved]
  - Off label use [Not Recovered/Not Resolved]
  - Aggression [Not Recovered/Not Resolved]

NARRATIVE: CASE EVENT DATE: 201707
